FAERS Safety Report 9158318 (Version 2)
Quarter: 2013Q1

REPORT INFORMATION
  Report Type: Spontaneous
  Country: US (occurrence: US)
  Receive Date: 20130312
  Receipt Date: 20130315
  Transmission Date: 20140127
  Serious: Yes (Death, Hospitalization)
  Sender: FDA-Public Use
  Company Number: US-BAXTER-2013BAX008704

PATIENT
  Age: 72 Year
  Sex: Male

DRUGS (1)
  1. DIANEAL LOW CALCIUM (ULTRABAG) [Suspect]
     Indication: PERITONEAL DIALYSIS
     Route: 033

REACTIONS (7)
  - Cardiac arrest [Fatal]
  - Renal failure [Fatal]
  - Myelodysplastic syndrome [Fatal]
  - Anaemia [Fatal]
  - Cardiac failure congestive [Fatal]
  - Multimorbidity [Fatal]
  - Pneumonia [Not Recovered/Not Resolved]
